FAERS Safety Report 20061420 (Version 1)
Quarter: 2021Q4

REPORT INFORMATION
  Report Type: Spontaneous
  Country: US (occurrence: US)
  Receive Date: 20211112
  Receipt Date: 20211112
  Transmission Date: 20220304
  Serious: No
  Sender: FDA-Public Use
  Company Number: US-BEH-2021137563

PATIENT
  Age: 16 Year
  Sex: Female

DRUGS (3)
  1. HIZENTRA [Suspect]
     Active Substance: HUMAN IMMUNOGLOBULIN G
     Indication: Immunodeficiency
     Dosage: 2 GRAM, TIW
     Route: 058
     Dates: start: 20210327
  2. EPINEPHRINE [Concomitant]
     Active Substance: EPINEPHRINE
  3. LIDOCAINE [Concomitant]
     Active Substance: LIDOCAINE

REACTIONS (3)
  - Sinusitis [Not Recovered/Not Resolved]
  - No adverse event [Unknown]
  - Insurance issue [Unknown]

NARRATIVE: CASE EVENT DATE: 20211025
